FAERS Safety Report 6681901-0 (Version None)
Quarter: 2010Q2

REPORT INFORMATION
  Report Type: 
  Country: None (occurrence: None)
  Receive Date: 20100414
  Receipt Date: 20100409
  Transmission Date: 20101027
  Serious: Yes (Other)
  Sender: FDA-Public Use
  Company Number: US-MERCK-1003USA03896

PATIENT
  Sex: Female

DRUGS (2)
  1. FOSAMAX [Suspect]
     Route: 048
     Dates: start: 19850301
  2. FOSAMAX [Suspect]
     Route: 048

REACTIONS (5)
  - BACK CRUSHING [None]
  - HIP FRACTURE [None]
  - OESOPHAGEAL ULCER [None]
  - SPINAL FRACTURE [None]
  - WRIST FRACTURE [None]
